FAERS Safety Report 4557448-4 (Version None)
Quarter: 2005Q1

REPORT INFORMATION
  Report Type: 
  Country: None (occurrence: None)
  Receive Date: 20050118
  Receipt Date: 20041005
  Transmission Date: 20050727
  Serious: Yes (Death)
  Sender: FDA-Public Use
  Company Number: 2005-CN-00144CN

PATIENT
  Sex: 0

DRUGS (1)
  1. ATROVENT [Suspect]
     Dosage: IH
     Route: 055

REACTIONS (1)
  - DEATH [None]
